FAERS Safety Report 13643104 (Version 2)
Quarter: 2020Q2

REPORT INFORMATION
  Report Type: Spontaneous
  Country: JP (occurrence: JP)
  Receive Date: 20170612
  Receipt Date: 20200624
  Transmission Date: 20200713
  Serious: Yes (Death, Hospitalization, Other)
  Sender: FDA-Public Use
  Company Number: JP-BRISTOL-MYERS SQUIBB COMPANY-BMS-2017-050720

PATIENT
  Age: 85 Year
  Sex: Female
  Weight: 47 kg

DRUGS (1)
  1. ELIQUIS [Suspect]
     Active Substance: APIXABAN
     Indication: CEREBROVASCULAR ACCIDENT PROPHYLAXIS
     Dosage: 2.5 MILLIGRAM, BID
     Route: 048
     Dates: start: 20141224, end: 20170523

REACTIONS (2)
  - Haemorrhagic cerebral infarction [Fatal]
  - Carotid artery occlusion [Unknown]

NARRATIVE: CASE EVENT DATE: 20170523
